FAERS Safety Report 5878408-7 (Version None)
Quarter: 2008Q3

REPORT INFORMATION
  Report Type: 
  Country: None (occurrence: None)
  Receive Date: 20080911
  Receipt Date: 20080910
  Transmission Date: 20090109
  Serious: Yes (Death, Hospitalization)
  Sender: FDA-Public Use
  Company Number: GR-ABBOTT-08P-066-0464503-00

PATIENT
  Age: 31 Year
  Sex: Male

DRUGS (2)
  1. REDUCTIL [Suspect]
     Indication: OBESITY
  2. CELECOXIB [Concomitant]
     Indication: MYALGIA
     Dates: start: 20080720

REACTIONS (1)
  - SUBARACHNOID HAEMORRHAGE [None]
